FAERS Safety Report 10687518 (Version 1)
Quarter: 2014Q4

REPORT INFORMATION
  Report Type: Spontaneous
  Country: US (occurrence: None)
  Receive Date: 20141231
  Receipt Date: 20141231
  Transmission Date: 20150529
  Serious: No
  Sender: FDA-Public Use
  Company Number: None

PATIENT
  Age: 83 Year
  Sex: Male

DRUGS (15)
  1. DECADRON [Concomitant]
     Active Substance: DEXAMETHASONE
  2. LOSARTAN [Concomitant]
     Active Substance: LOSARTAN
  3. OCUVITE [Concomitant]
     Active Substance: VITAMINS
  4. VITAMIN D3 [Concomitant]
     Active Substance: CHOLECALCIFEROL
  5. WARFARIN [Concomitant]
     Active Substance: WARFARIN
  6. ASA 81MG [Concomitant]
  7. ATENOLOL. [Concomitant]
     Active Substance: ATENOLOL
  8. GABAPENTIN. [Concomitant]
     Active Substance: GABAPENTIN
  9. GLIPIZIDE. [Concomitant]
     Active Substance: GLIPIZIDE
  10. OMEPRAZOLE. [Concomitant]
     Active Substance: OMEPRAZOLE
  11. REVLIMID [Suspect]
     Active Substance: LENALIDOMIDE
     Indication: PLASMA CELL MYELOMA
     Dosage: EVERY OTHER DAY ORALLY
     Route: 048
     Dates: start: 201408
  12. SLO_NIACIN [Concomitant]
  13. NORTRIPTYLINE [Concomitant]
     Active Substance: NORTRIPTYLINE
  14. ROCALTROL [Concomitant]
     Active Substance: CALCITRIOL
  15. PROSCAR [Concomitant]
     Active Substance: FINASTERIDE

REACTIONS (1)
  - Staphylococcal bacteraemia [None]

NARRATIVE: CASE EVENT DATE: 20141225
